FAERS Safety Report 8243773-2 (Version None)
Quarter: 2012Q1

REPORT INFORMATION
  Report Type: 
  Country: None (occurrence: None)
  Receive Date: 20120329
  Receipt Date: 20110920
  Transmission Date: 20120608
  Serious: No
  Sender: FDA-Public Use
  Company Number: US-MYLANLABS-2011S1019689

PATIENT
  Age: 44 Year
  Sex: Female

DRUGS (7)
  1. EMSAM [Suspect]
     Dosage: QD
     Route: 062
     Dates: start: 20110809, end: 20110901
  2. EMSAM [Suspect]
     Dosage: QD
     Route: 062
     Dates: start: 20110902, end: 20110915
  3. EMSAM [Suspect]
     Indication: SUICIDAL IDEATION
     Dosage: QD
     Route: 062
     Dates: start: 20110803, end: 20110808
  4. LITHIUM CARBONATE [Concomitant]
     Indication: DEPRESSION
     Route: 048
  5. EMSAM [Suspect]
     Indication: DEPRESSION
     Dosage: QD
     Route: 062
     Dates: start: 20110803, end: 20110808
  6. EMSAM [Suspect]
     Dosage: QD
     Route: 062
     Dates: start: 20110809, end: 20110901
  7. EMSAM [Suspect]
     Dosage: QD
     Route: 062
     Dates: start: 20110902, end: 20110915

REACTIONS (2)
  - ANXIETY [None]
  - EMOTIONAL POVERTY [None]
